FAERS Safety Report 6234647-7 (Version None)
Quarter: 2009Q2

REPORT INFORMATION
  Report Type: 
  Country: None (occurrence: None)
  Receive Date: 20090615
  Receipt Date: 20090414
  Transmission Date: 20091009
  Serious: No
  Sender: FDA-Public Use
  Company Number: DSA_33508_2009

PATIENT
  Sex: Female

DRUGS (6)
  1. XENAZINE [Suspect]
     Indication: TREMOR
     Dosage: 25 MG BID
     Dates: start: 20090301, end: 20090301
  2. DEPAKOTE [Concomitant]
  3. PROZAC [Concomitant]
  4. SYNTHROID [Concomitant]
  5. VITAMINS NOS [Concomitant]
  6. KEPPRA [Concomitant]

REACTIONS (3)
  - CRYING [None]
  - DEPRESSION [None]
  - SOMNOLENCE [None]
